FAERS Safety Report 4739588-X (Version None)
Quarter: 2005Q3

REPORT INFORMATION
  Report Type: 
  Country: None (occurrence: None)
  Receive Date: 20050810
  Receipt Date: 20050407
  Transmission Date: 20060218
  Serious: No
  Sender: FDA-Public Use
  Company Number: US-GLAXOSMITHKLINE-A0553188A

PATIENT
  Age: 17 Year
  Sex: Female

DRUGS (4)
  1. PAROXETINE HCL [Suspect]
     Indication: DEPRESSION
     Route: 048
  2. CONCERTA [Concomitant]
  3. STRATTERA [Concomitant]
  4. PAXIL CR [Concomitant]
     Route: 048

REACTIONS (3)
  - ANGER [None]
  - INSOMNIA [None]
  - PERSONALITY CHANGE [None]
